FAERS Safety Report 8160545-8 (Version None)
Quarter: 2012Q1

REPORT INFORMATION
  Report Type: 
  Country: None (occurrence: None)
  Receive Date: 20120223
  Receipt Date: 20120208
  Transmission Date: 20120608
  Serious: Yes (Hospitalization)
  Sender: FDA-Public Use
  Company Number: CHPA2012US003169

PATIENT
  Age: 89 Year

DRUGS (4)
  1. VITAMINS NOS [Concomitant]
     Dosage: UNK
     Route: 048
  2. DRUG THERAPY NOS [Concomitant]
     Dosage: UNK
  3. EXCEDRIN (MIGRAINE) [Suspect]
     Dosage: UNK DF, UNK
     Route: 048
     Dates: start: 20110101, end: 20110919
  4. DRUG THERAPY NOS [Concomitant]
     Indication: BLOOD PRESSURE
     Dosage: UNK

REACTIONS (1)
  - GASTRIC ULCER HAEMORRHAGE [None]
